FAERS Safety Report 10124398 (Version 2)
Quarter: 2015Q1

REPORT INFORMATION
  Report Type: Other
  Country: None (occurrence: US)
  Receive Date: 20140427
  Receipt Date: 20150202
  Transmission Date: 20150720
  Serious: Yes (Death, Hospitalization, Other)
  Sender: FDA-Public Use
  Company Number: US-GSKPPD-2014GSK024252

PATIENT
  Age: 70 Year
  Sex: Female

DRUGS (7)
  1. AVANDIA [Suspect]
     Active Substance: ROSIGLITAZONE MALEATE
     Indication: DIABETES MELLITUS
     Dosage: DATES OF AVANDIA USE COULD NOT BE CONFIRMED IN RECORDS REVIEWED
     Route: 048
  2. MIDODRINE [Concomitant]
     Active Substance: MIDODRINE
     Dates: start: 20090123
  3. CARVEDILOL. [Concomitant]
     Active Substance: CARVEDILOL
  4. ASPIRIN. [Concomitant]
     Active Substance: ASPIRIN
  5. DOPAMINE [Concomitant]
     Active Substance: DOPAMINE\DOPAMINE HYDROCHLORIDE
     Dates: start: 20090115, end: 20090122
  6. LISINOPRIL. [Concomitant]
     Active Substance: LISINOPRIL
  7. FUROSEMIDE. [Concomitant]
     Active Substance: FUROSEMIDE

REACTIONS (3)
  - Myocardial infarction [Recovered/Resolved]
  - Arteriosclerosis coronary artery [Fatal]
  - Sudden cardiac death [Unknown]

NARRATIVE: CASE EVENT DATE: 20090115
